FAERS Safety Report 6401967-2 (Version None)
Quarter: 2009Q4

REPORT INFORMATION
  Report Type: 
  Country: None (occurrence: None)
  Receive Date: 20091015
  Receipt Date: 20091008
  Transmission Date: 20100525
  Serious: Yes (Hospitalization)
  Sender: FDA-Public Use
  Company Number: B0581209A

PATIENT
  Sex: Male

DRUGS (9)
  1. PAXIL [Suspect]
     Indication: DEPRESSION
     Dosage: 10MG PER DAY
     Route: 048
     Dates: start: 20090608, end: 20090615
  2. TEGRETOL [Suspect]
     Indication: RESTLESSNESS
     Dosage: 200MG PER DAY
     Route: 048
     Dates: start: 20090521, end: 20090614
  3. RISPERDAL [Suspect]
     Indication: RESTLESSNESS
     Dosage: 1MG PER DAY
     Route: 048
     Dates: start: 20090515, end: 20090621
  4. VOGLIBOSE [Suspect]
     Dosage: .3MG THREE TIMES PER DAY
     Route: 048
     Dates: start: 20090515, end: 20090618
  5. MICARDIS [Suspect]
     Indication: HYPERTENSION
     Dosage: 20MG TWICE PER DAY
     Route: 048
     Dates: start: 20090429, end: 20090618
  6. FASTIC [Suspect]
     Dosage: 30MG THREE TIMES PER DAY
     Route: 048
     Dates: start: 20090515, end: 20090618
  7. OMEPRAL [Suspect]
     Indication: GASTRIC ULCER
     Dosage: 20MG PER DAY
     Route: 065
     Dates: start: 20090515, end: 20090618
  8. PLAVIX [Suspect]
     Indication: CEREBRAL INFARCTION
     Dosage: 75MG PER DAY
     Route: 048
     Dates: start: 20090428, end: 20090620
  9. VEGETAMIN B [Suspect]
     Indication: RESTLESSNESS
     Route: 048
     Dates: start: 20090518, end: 20090621

REACTIONS (13)
  - BLOOD ALKALINE PHOSPHATASE INCREASED [None]
  - BLOOD CREATININE INCREASED [None]
  - BLOOD UREA INCREASED [None]
  - ERYTHEMA [None]
  - GAMMA-GLUTAMYLTRANSFERASE INCREASED [None]
  - GENITAL EROSION [None]
  - HEPATITIS CHOLESTATIC [None]
  - LIP EROSION [None]
  - LIVER DISORDER [None]
  - PLATELET COUNT DECREASED [None]
  - RASH [None]
  - RENAL IMPAIRMENT [None]
  - STEVENS-JOHNSON SYNDROME [None]
